FAERS Safety Report 5567660-3 (Version None)
Quarter: 2007Q4

REPORT INFORMATION
  Report Type: 
  Country: None (occurrence: None)
  Receive Date: 20071217
  Receipt Date: 20070828
  Transmission Date: 20080405
  Serious: No
  Sender: FDA-Public Use
  Company Number: ADE#07-002

PATIENT
  Sex: Male
  Weight: 81.6475 kg

DRUGS (7)
  1. CLONAZEPAM [Suspect]
     Indication: ANXIETY
     Dosage: 1 TABLET 4 TIMES DAILY
     Dates: start: 20070801
  2. CLONAZEPAM [Suspect]
     Indication: DEPRESSION
     Dosage: 1 TABLET 4 TIMES DAILY
     Dates: start: 20070801
  3. CLONAZEPAM [Suspect]
     Indication: NERVOUSNESS
     Dosage: 1 TABLET 4 TIMES DAILY
     Dates: start: 20070801
  4. DILANTIN [Concomitant]
  5. TEGRETOL [Concomitant]
  6. ATENOLOL [Concomitant]
  7. PROZAC [Concomitant]

REACTIONS (9)
  - CHILLS [None]
  - CONVULSION [None]
  - DIARRHOEA [None]
  - DRUG INEFFECTIVE [None]
  - HYPERHIDROSIS [None]
  - HYPOAESTHESIA [None]
  - INSOMNIA [None]
  - MALAISE [None]
  - PHARMACEUTICAL PRODUCT COMPLAINT [None]
